FAERS Safety Report 12994270 (Version 5)
Quarter: 2017Q1

REPORT INFORMATION
  Report Type: Report from Study
  Country: GB (occurrence: GB)
  Receive Date: 20161202
  Receipt Date: 20170206
  Transmission Date: 20170428
  Serious: Yes (Other)
  Sender: FDA-Public Use
  Company Number: GB-PFIZER INC-2016542565

PATIENT
  Age: 49 Year
  Sex: Female
  Weight: 74.6 kg

DRUGS (10)
  1. COLECALCIFEROL [Concomitant]
     Active Substance: CHOLECALCIFEROL
     Indication: PROPHYLAXIS
     Dosage: 400 IU, 1X/DAY
     Route: 048
     Dates: start: 20160828
  2. PARACETAMOL [Concomitant]
     Active Substance: ACETAMINOPHEN
     Dosage: 1 G, 1X/DAY
     Route: 048
     Dates: start: 20160915
  3. DENOSUMAB [Concomitant]
     Active Substance: DENOSUMAB
     Indication: PROPHYLAXIS
     Dosage: UNK
     Route: 058
     Dates: start: 20161228
  4. PARACETAMOL [Concomitant]
     Active Substance: ACETAMINOPHEN
     Dosage: 1 G, 1X/DAY
     Route: 048
     Dates: start: 20160908
  5. PALBOCICLIB [Suspect]
     Active Substance: PALBOCICLIB
     Dosage: 75 MG, DAILY FOR 21 DAYS OUT OF A CYCLE OF 28 DAYS
     Dates: start: 20161228, end: 20170103
  6. FULVESTRANT [Suspect]
     Active Substance: FULVESTRANT
     Indication: BREAST CANCER METASTATIC
     Dosage: 500 MG, CYCLIC (ONCE EVERY 28 DAYS)
     Route: 030
     Dates: start: 20160906
  7. ZOLEDRONIC ACID. [Concomitant]
     Active Substance: ZOLEDRONIC ACID
     Indication: PROPHYLAXIS
     Dosage: 4 MG, MONTHLY
     Route: 042
     Dates: start: 20160827, end: 20161203
  8. PALBOCICLIB [Suspect]
     Active Substance: PALBOCICLIB
     Indication: BREAST CANCER METASTATIC
     Dosage: 125 MG, DAILY FOR 21 DAYS OUT OF A CYCLE OF 28 DAYS
     Route: 048
     Dates: start: 20160906, end: 20161119
  9. PARACETAMOL [Concomitant]
     Active Substance: ACETAMINOPHEN
     Dosage: 1 G, 1X/DAY
     Route: 048
     Dates: start: 20160907, end: 20160907
  10. CALCICHEW-D3 FORTE [Concomitant]
     Active Substance: CALCIUM\CHOLECALCIFEROL
     Indication: MINERAL SUPPLEMENTATION
     Dosage: 1250 MG, 1X/DAY
     Route: 048
     Dates: start: 20160828

REACTIONS (1)
  - Alanine aminotransferase increased [Recovered/Resolved]

NARRATIVE: CASE EVENT DATE: 20161117
